FAERS Safety Report 14676394 (Version 1)
Quarter: 2018Q1

REPORT INFORMATION
  Report Type: Spontaneous
  Country: FR (occurrence: FR)
  Receive Date: 20180323
  Receipt Date: 20180323
  Transmission Date: 20180509
  Serious: Yes (Other)
  Sender: FDA-Public Use
  Company Number: FR-BRISTOL-MYERS SQUIBB COMPANY-BMS-2018-025299

PATIENT
  Age: 62 Year
  Sex: Female

DRUGS (1)
  1. NIVOLUMAB [Suspect]
     Active Substance: NIVOLUMAB
     Indication: BRONCHIAL CARCINOMA
     Dosage: 3 MG/KG, Q2WK
     Route: 042
     Dates: start: 2016

REACTIONS (9)
  - Cholestasis [Unknown]
  - Lymphadenopathy mediastinal [Unknown]
  - Lymphadenitis [Unknown]
  - Biliary dilatation [Unknown]
  - Gamma-glutamyltransferase increased [Unknown]
  - Cholangitis [Unknown]
  - Hepatocellular injury [Unknown]
  - Transaminases increased [Unknown]
  - Hepatitis [Unknown]

NARRATIVE: CASE EVENT DATE: 201708
